FAERS Safety Report 11621253 (Version 2)
Quarter: 2015Q4

REPORT INFORMATION
  Report Type: Spontaneous
  Country: US (occurrence: US)
  Receive Date: 20151012
  Receipt Date: 20151119
  Transmission Date: 20160304
  Serious: No
  Sender: FDA-Public Use
  Company Number: US-GLAXOSMITHKLINE-US2015GSK139534

PATIENT
  Age: 41 Year
  Sex: Female

DRUGS (2)
  1. SUMATRIPTAN SOLUTION FOR INJECTION [Suspect]
     Active Substance: SUMATRIPTAN
     Indication: MIGRAINE
     Dosage: 6 MG, UNK
     Dates: start: 201503
  2. SUMATRIPTAN SOLUTION FOR INJECTION [Suspect]
     Active Substance: SUMATRIPTAN
     Dosage: 6 MG, UNK

REACTIONS (3)
  - Product quality issue [Unknown]
  - Contusion [Unknown]
  - Laceration [Unknown]

NARRATIVE: CASE EVENT DATE: 20150913
